FAERS Safety Report 6565159-9 (Version None)
Quarter: 2010Q1

REPORT INFORMATION
  Report Type: 
  Country: None (occurrence: None)
  Receive Date: 20100201
  Receipt Date: 20100120
  Transmission Date: 20100710
  Serious: Yes (Other)
  Sender: FDA-Public Use
  Company Number: B0628552A

PATIENT
  Age: 92 Year
  Sex: Male
  Weight: 74 kg

DRUGS (18)
  1. PANDEMRIX [Suspect]
     Indication: PROPHYLAXIS
     Route: 030
     Dates: start: 20091205, end: 20091205
  2. ZOPICLONE [Suspect]
  3. DUTASTERIDE [Suspect]
  4. BENDROFLUMETHIAZIDE [Suspect]
  5. GABAPENTIN [Suspect]
  6. PRAMIPEXOLE DIHYDROCHLORIDE [Suspect]
  7. ASPIRIN [Suspect]
  8. TELMISARTAN [Suspect]
  9. ATENOLOL [Suspect]
  10. PEPPERMINT OIL [Suspect]
  11. MOVICOL [Suspect]
  12. FELODIPINE [Suspect]
  13. OTOMIZE [Suspect]
  14. TRAZODONE [Suspect]
  15. LANSOPRAZOLE [Suspect]
  16. RISEDRONATE SODIUM [Suspect]
  17. TAMSULOSIN [Suspect]
  18. INFLUENZA VIRUS VACCINE [Concomitant]

REACTIONS (1)
  - SYNCOPE [None]
